FAERS Safety Report 25811820 (Version 1)
Quarter: 2025Q3

REPORT INFORMATION
  Report Type: Spontaneous
  Country: EU (occurrence: EU)
  Receive Date: 20250917
  Receipt Date: 20250917
  Transmission Date: 20251021
  Serious: Yes (Other)
  Sender: BAXTER
  Company Number: None

PATIENT
  Sex: Male

DRUGS (4)
  1. ELECTROLYTES NOS [Suspect]
     Active Substance: ELECTROLYTES NOS
     Indication: Melaena
     Route: 042
     Dates: start: 20210612, end: 20210613
  2. POTASSIUM CHLORIDE [Suspect]
     Active Substance: POTASSIUM CHLORIDE
     Indication: Melaena
     Route: 042
     Dates: start: 20210613, end: 20210613
  3. OMEPRAZOLE [Suspect]
     Active Substance: OMEPRAZOLE
     Indication: Melaena
     Route: 042
     Dates: start: 20210612, end: 20210613
  4. DIAZEPAM [Suspect]
     Active Substance: DIAZEPAM
     Indication: Melaena
     Route: 042
     Dates: start: 20210612, end: 20210613

REACTIONS (1)
  - Thrombocytopenia [Recovering/Resolving]

NARRATIVE: CASE EVENT DATE: 20210613
